FAERS Safety Report 4769925-1 (Version None)
Quarter: 2005Q3

REPORT INFORMATION
  Report Type: 
  Country: None (occurrence: None)
  Receive Date: 20050914
  Receipt Date: 20050906
  Transmission Date: 20060218
  Serious: Yes (Life-Threatening, Hospitalization, Disabling)
  Sender: FDA-Public Use
  Company Number: THQ2005A00810

PATIENT
  Age: 84 Year
  Sex: Female

DRUGS (3)
  1. LANSOPRAZOLE [Suspect]
     Indication: GASTROOESOPHAGEAL REFLUX DISEASE
     Dosage: 30 MG PER ORAL
     Route: 048
     Dates: end: 20050603
  2. CEFRADINE [Concomitant]
  3. CIPROFLOXACIN [Concomitant]

REACTIONS (1)
  - CLOSTRIDIAL INFECTION [None]
